FAERS Safety Report 23456092 (Version 1)
Quarter: 2024Q1

REPORT INFORMATION
  Report Type: Spontaneous
  Country: US (occurrence: US)
  Receive Date: 20240130
  Receipt Date: 20240130
  Transmission Date: 20240410
  Serious: No
  Sender: FDA-Public Use
  Company Number: US-002147023-NVSC2024US020331

PATIENT

DRUGS (1)
  1. LEQVIO [Suspect]
     Active Substance: INCLISIRAN SODIUM
     Indication: Low density lipoprotein decreased
     Dosage: 284 MG (INITIAL THE 3 MONTHS THEN EVERY 6)
     Route: 058
     Dates: start: 20240129, end: 20240129

REACTIONS (1)
  - Blood triglycerides increased [Unknown]
